FAERS Safety Report 6839373-9 (Version None)
Quarter: 2010Q3

REPORT INFORMATION
  Report Type: 
  Country: None (occurrence: None)
  Receive Date: 20100714
  Receipt Date: 20100707
  Transmission Date: 20110219
  Serious: Yes (Disabling)
  Sender: FDA-Public Use
  Company Number: FR-ASTRAZENECA-2010SE31740

PATIENT
  Age: 661 Month
  Sex: Male

DRUGS (5)
  1. PULMICORT [Suspect]
     Indication: CHRONIC OBSTRUCTIVE PULMONARY DISEASE
     Dosage: 0.5 MG/2 ML TWICE PER DAY
     Route: 055
     Dates: start: 20100427, end: 20100610
  2. NORVIR [Interacting]
     Indication: HIV INFECTION
     Route: 048
     Dates: start: 20070129, end: 20100610
  3. ABACAVIR SULFATE AND LAMIVUDINE [Concomitant]
     Dates: start: 20070129
  4. REYATAZ [Concomitant]
     Dates: start: 20070129
  5. BACTRIM [Concomitant]
     Dates: start: 20070101

REACTIONS (5)
  - ABDOMINAL DISTENSION [None]
  - BLOOD CORTISOL DECREASED [None]
  - CHEST DISCOMFORT [None]
  - CUSHINGOID [None]
  - DRUG INTERACTION [None]
